FAERS Safety Report 7212113-X (Version None)
Quarter: 2011Q1

REPORT INFORMATION
  Report Type: 
  Country: None (occurrence: None)
  Receive Date: 20110106
  Receipt Date: 20101223
  Transmission Date: 20110831
  Serious: Yes (Hospitalization)
  Sender: FDA-Public Use
  Company Number: GB-RANBAXY-2010R1-40715

PATIENT
  Age: 30 Year
  Sex: Female

DRUGS (6)
  1. CODEINE SULFATE [Suspect]
     Indication: PRODUCT USED FOR UNKNOWN INDICATION
     Dosage: UNK
     Route: 065
  2. COCAINE [Suspect]
     Indication: DRUG ABUSE
     Dosage: UNK
     Route: 065
  3. CANNABIS [Suspect]
     Indication: DRUG ABUSE
     Dosage: UNK
     Route: 065
  4. HEROIN [Suspect]
     Indication: DRUG ABUSE
     Dosage: UNK
     Route: 065
  5. CITALOPRAM HYDROBROMIDE [Suspect]
     Indication: PRODUCT USED FOR UNKNOWN INDICATION
     Dosage: 20 MG, UNK
     Route: 065
  6. METHADONE HCL [Suspect]
     Indication: PRODUCT USED FOR UNKNOWN INDICATION
     Dosage: 80 MG, UNK
     Route: 065

REACTIONS (4)
  - ELECTROCARDIOGRAM ST SEGMENT ABNORMAL [None]
  - ELECTROCARDIOGRAM QT PROLONGED [None]
  - LIVER FUNCTION TEST ABNORMAL [None]
  - HYPOKALAEMIA [None]
